FAERS Safety Report 6155324-7 (Version None)
Quarter: 2009Q2

REPORT INFORMATION
  Report Type: 
  Country: None (occurrence: None)
  Receive Date: 20090415
  Receipt Date: 20090409
  Transmission Date: 20091009
  Serious: Yes (Other)
  Sender: FDA-Public Use
  Company Number: US-ASTRAZENECA-2009UW08991

PATIENT
  Age: 88 Year
  Sex: Female
  Weight: 86.2 kg

DRUGS (1)
  1. ARIMIDEX [Suspect]
     Route: 048
     Dates: start: 20080901

REACTIONS (5)
  - BLOOD TEST ABNORMAL [None]
  - BREAST TENDERNESS [None]
  - ERYTHEMA [None]
  - HEAT OEDEMA [None]
  - MASTECTOMY [None]
